FAERS Safety Report 4713387-7 (Version None)
Quarter: 2005Q3

REPORT INFORMATION
  Report Type: 
  Country: None (occurrence: None)
  Receive Date: 20050711
  Receipt Date: 20050627
  Transmission Date: 20060218
  Serious: Yes (Other)
  Sender: FDA-Public Use
  Company Number: 2005054409

PATIENT
  Age: 47 Year
  Sex: Male
  Weight: 66.5 kg

DRUGS (2)
  1. TAHOR (ATORVASTATIN) [Suspect]
     Indication: HYPERCHOLESTEROLAEMIA
     Dosage: 20 MG (20 MG, 1 IN 1 D); ORAL
     Route: 048
     Dates: start: 20050129, end: 20050324
  2. PRITOR (TELMISARTAN) [Concomitant]

REACTIONS (3)
  - HAEMATOMA [None]
  - PAIN IN EXTREMITY [None]
  - TENDON RUPTURE [None]
